FAERS Safety Report 17112132 (Version 1)
Quarter: 2019Q4

REPORT INFORMATION
  Report Type: Spontaneous
  Country: IT (occurrence: IT)
  Receive Date: 20191204
  Receipt Date: 20191204
  Transmission Date: 20200122
  Serious: Yes (Hospitalization)
  Sender: FDA-Public Use
  Company Number: IT-UCBSA-2019050187

PATIENT
  Age: 46 Year
  Sex: Male

DRUGS (2)
  1. TEGRETOL [Suspect]
     Active Substance: CARBAMAZEPINE
     Indication: EPILEPSY
     Dosage: 2 DOSAGE FORM, ONE DAY
     Route: 048
     Dates: start: 20150101
  2. KEPPRA [Suspect]
     Active Substance: LEVETIRACETAM
     Indication: EPILEPSY
     Dosage: 2 DOSAGE FORM, A DAY
     Route: 048
     Dates: start: 20150101

REACTIONS (4)
  - Blood creatine decreased [Recovering/Resolving]
  - Drug ineffective [Unknown]
  - Epilepsy [Recovering/Resolving]
  - Blood sodium decreased [Recovering/Resolving]

NARRATIVE: CASE EVENT DATE: 20191002
